FAERS Safety Report 8141592-9 (Version None)
Quarter: 2012Q1

REPORT INFORMATION
  Report Type: 
  Country: None (occurrence: None)
  Receive Date: 20120216
  Receipt Date: 20120208
  Transmission Date: 20120608
  Serious: Yes (Other)
  Sender: FDA-Public Use
  Company Number: TR-GILEAD-2012-0049376

PATIENT
  Age: 34 Year
  Sex: Male

DRUGS (3)
  1. INTERFERON [Concomitant]
     Indication: PRODUCT USED FOR UNKNOWN INDICATION
     Dosage: UNK
  2. ENTECAVIR [Concomitant]
     Indication: PRODUCT USED FOR UNKNOWN INDICATION
     Dosage: UNK
  3. VIREAD [Suspect]
     Indication: HEPATITIS B
     Dosage: UNK

REACTIONS (2)
  - GENOTYPE DRUG RESISTANCE TEST POSITIVE [None]
  - VIRAL LOAD INCREASED [None]
